FAERS Safety Report 9552098 (Version 1)
Quarter: 2013Q3

REPORT INFORMATION
  Report Type: Spontaneous
  Country: IT (occurrence: IT)
  Receive Date: 20130925
  Receipt Date: 20130925
  Transmission Date: 20140515
  Serious: Yes (Hospitalization)
  Sender: FDA-Public Use
  Company Number: PHHY2013IT105819

PATIENT
  Age: 75 Year
  Sex: Male

DRUGS (11)
  1. TASIGNA [Suspect]
     Indication: CHRONIC MYELOID LEUKAEMIA
  2. TASIGNA [Suspect]
     Dates: start: 20130513, end: 20130516
  3. PANTOPAN [Concomitant]
  4. LASIX [Concomitant]
     Dosage: 250 MG
     Route: 048
  5. CORDARONE [Concomitant]
     Dosage: 200 MG
  6. CARDICOR [Concomitant]
  7. ZYLORIC [Concomitant]
     Dosage: 300 MG
     Route: 048
  8. LANOXIN [Concomitant]
  9. AVODART [Concomitant]
  10. UROREC [Concomitant]
  11. FOLINA [Concomitant]
     Dosage: 5 MG

REACTIONS (1)
  - Cardiac failure [Not Recovered/Not Resolved]
